FAERS Safety Report 23999727 (Version 1)
Quarter: 2024Q2

REPORT INFORMATION
  Report Type: Spontaneous
  Country: FR (occurrence: FR)
  Receive Date: 20240621
  Receipt Date: 20240621
  Transmission Date: 20240715
  Serious: Yes (Other)
  Sender: FDA-Public Use
  Company Number: FR-AMGEN-FRASP2024120819

PATIENT

DRUGS (1)
  1. ADALIMUMAB [Suspect]
     Active Substance: ADALIMUMAB\ISOPROPYL ALCOHOL
     Indication: Vasculitis
     Dosage: UNK
     Route: 065

REACTIONS (13)
  - Transient ischaemic attack [Unknown]
  - Aortic stenosis [Unknown]
  - Aortic dissection [Unknown]
  - Takayasu^s arteritis [Unknown]
  - Arterial stenosis [Unknown]
  - Carotid artery dissection [Unknown]
  - Carotid artery stenosis [Unknown]
  - Cerebrovascular accident [Unknown]
  - Arterial disorder [Unknown]
  - Aneurysm [Unknown]
  - Giant cell arteritis [Unknown]
  - Off label use [Unknown]
  - Vasculitis [Unknown]
